FAERS Safety Report 25996906 (Version 2)
Quarter: 2025Q4

REPORT INFORMATION
  Report Type: Spontaneous
  Country: EU (occurrence: EU)
  Receive Date: 20251104
  Receipt Date: 20251203
  Transmission Date: 20260118
  Serious: Yes (Hospitalization, Other)
  Sender: ASTELLAS
  Company Number: EU-ASTELLAS-2025-AER-060739

PATIENT
  Age: 63 Year
  Sex: Male

DRUGS (7)
  1. ENZALUTAMIDE [Suspect]
     Active Substance: ENZALUTAMIDE
     Indication: Prostate cancer
     Route: 065
     Dates: start: 202408, end: 202503
  2. TALAZOPARIB [Suspect]
     Active Substance: TALAZOPARIB
     Indication: Prostate cancer
     Route: 065
     Dates: start: 202501, end: 202503
  3. TALAZOPARIB [Suspect]
     Active Substance: TALAZOPARIB
     Route: 065
     Dates: start: 202509
  4. TALAZOPARIB [Suspect]
     Active Substance: TALAZOPARIB
     Route: 065
     Dates: start: 202408, end: 202412
  5. TALAZOPARIB [Suspect]
     Active Substance: TALAZOPARIB
     Route: 065
     Dates: start: 2025, end: 202508
  6. ABIRATERONE [Concomitant]
     Active Substance: ABIRATERONE
     Indication: Prostate cancer
     Dosage: ADT + ABIRATERONE 1000MG/24H
     Route: 065
     Dates: start: 202108
  7. DEXAMETHASONE [Concomitant]
     Active Substance: DEXAMETHASONE
     Indication: Prostate cancer
     Route: 065
     Dates: start: 202310

REACTIONS (3)
  - Transient ischaemic attack [Unknown]
  - Arteriosclerosis [Unknown]
  - Anaemia [Unknown]

NARRATIVE: CASE EVENT DATE: 20241201
